FAERS Safety Report 13419222 (Version 2)
Quarter: 2017Q2

REPORT INFORMATION
  Report Type: Spontaneous
  Country: FR (occurrence: FR)
  Receive Date: 20170407
  Receipt Date: 20170410
  Transmission Date: 20170830
  Serious: Yes (Other)
  Sender: FDA-Public Use
  Company Number: FR-009507513-1703FRA014042

PATIENT
  Age: 37 Year
  Sex: Female

DRUGS (1)
  1. IMPLANON [Suspect]
     Active Substance: ETONOGESTREL
     Dosage: THE IMPLANT, UNK
     Route: 059
     Dates: start: 2010

REACTIONS (9)
  - Incorrect drug administration duration [Unknown]
  - Amenorrhoea [Unknown]
  - Menstruation normal [Unknown]
  - Unintended pregnancy [Recovered/Resolved]
  - Pregnancy with implant contraceptive [Recovered/Resolved]
  - Abortion induced [Unknown]
  - Off label use [Unknown]
  - Complication associated with device [Not Recovered/Not Resolved]
  - Metabolic surgery [Unknown]

NARRATIVE: CASE EVENT DATE: 201205
